FAERS Safety Report 19166492 (Version 1)
Quarter: 2021Q2

REPORT INFORMATION
  Report Type: Spontaneous
  Country: US (occurrence: US)
  Receive Date: 20210421
  Receipt Date: 20210421
  Transmission Date: 20210717
  Serious: Yes (Other)
  Sender: FDA-Public Use
  Company Number: None

PATIENT
  Age: 22 Year
  Sex: Male
  Weight: 108 kg

DRUGS (5)
  1. MULTIVITAMINS [Concomitant]
     Active Substance: VITAMINS
  2. (ARIPIPRAZOLE) [Suspect]
     Active Substance: ARIPIPRAZOLE
     Indication: INTERMITTENT EXPLOSIVE DISORDER
     Dosage: ?          QUANTITY:1 TABLET(S);?
     Route: 048
     Dates: start: 20210318, end: 20210415
  3. BUPROPION 100MG SR [Concomitant]
     Active Substance: BUPROPION HYDROCHLORIDE
  4. METHYLPHENIDATE 10MG ER [Concomitant]
  5. CETIRIZINE [Concomitant]
     Active Substance: CETIRIZINE HYDROCHLORIDE

REACTIONS (4)
  - Speech disorder [None]
  - Swollen tongue [None]
  - Tongue movement disturbance [None]
  - Tardive dyskinesia [None]

NARRATIVE: CASE EVENT DATE: 20210401
